FAERS Safety Report 7951377-1 (Version None)
Quarter: 2011Q4

REPORT INFORMATION
  Report Type: 
  Country: None (occurrence: None)
  Receive Date: 20111201
  Receipt Date: 20111125
  Transmission Date: 20120403
  Serious: Yes (Other)
  Sender: FDA-Public Use
  Company Number: GB-UCBSA-045916

PATIENT
  Age: 75 Year
  Sex: Male

DRUGS (1)
  1. CIMZIA [Suspect]
     Route: 058
     Dates: start: 20110919

REACTIONS (2)
  - DIARRHOEA [None]
  - DECREASED APPETITE [None]
